FAERS Safety Report 9186845 (Version 1)
Quarter: 2013Q1

REPORT INFORMATION
  Report Type: Spontaneous
  Country: NZ (occurrence: NZ)
  Receive Date: 20130325
  Receipt Date: 20130325
  Transmission Date: 20140127
  Serious: Yes (Hospitalization, Other)
  Sender: FDA-Public Use
  Company Number: NZ-JNJFOC-20130310537

PATIENT
  Sex: Female

DRUGS (2)
  1. MYLANTA [Suspect]
     Indication: BLOOD MAGNESIUM
     Dosage: TOOK FOR 4 WEEKS.
     Route: 048
  2. MYLANTA [Suspect]
     Indication: ANTACID THERAPY
     Dosage: TOOK FOR 4 WEEKS.
     Route: 048

REACTIONS (2)
  - Renal haemorrhage [Unknown]
  - Off label use [Unknown]
